FAERS Safety Report 21574477 (Version 1)
Quarter: 2022Q4

REPORT INFORMATION
  Report Type: Report from Study
  Country: TW (occurrence: TW)
  Receive Date: 20221109
  Receipt Date: 20221109
  Transmission Date: 20230113
  Serious: Yes (Hospitalization)
  Sender: FDA-Public Use
  Company Number: TW-ABBVIE-4193471

PATIENT
  Age: 64 Year
  Sex: Female
  Weight: 70 kg

DRUGS (2)
  1. HUMIRA [Suspect]
     Active Substance: ADALIMUMAB
     Indication: Psoriatic arthropathy
     Route: 058
     Dates: start: 20211202
  2. ACEMET [Concomitant]
     Indication: Psoriatic arthropathy
     Route: 048
     Dates: start: 20201015, end: 20221107

REACTIONS (5)
  - Hepatitis B antibody abnormal [Unknown]
  - Liver function test abnormal [Recovering/Resolving]
  - Dizziness [Unknown]
  - Asthenia [Unknown]
  - Cold sweat [Unknown]

NARRATIVE: CASE EVENT DATE: 20221026
